FAERS Safety Report 4659117-9 (Version None)
Quarter: 2005Q2

REPORT INFORMATION
  Report Type: 
  Country: None (occurrence: None)
  Receive Date: 20050511
  Receipt Date: 20050502
  Transmission Date: 20051028
  Serious: Yes (Death, Hospitalization)
  Sender: FDA-Public Use
  Company Number: 200513751US

PATIENT
  Age: 56 Year
  Sex: Male
  Weight: 84.2 kg

DRUGS (4)
  1. TAXOTERE [Suspect]
     Indication: PANCREATIC CARCINOMA
     Route: 042
     Dates: start: 20050224, end: 20050224
  2. LOVENOX [Suspect]
     Indication: THROMBOSIS
     Route: 058
     Dates: end: 20050420
  3. CETUXIMAB [Suspect]
     Indication: PANCREATIC CARCINOMA
     Route: 042
     Dates: end: 20050316
  4. IRINOTECAN [Suspect]
     Indication: PANCREATIC CARCINOMA
     Route: 042
     Dates: end: 20050224

REACTIONS (15)
  - BACTERIAL INFECTION [None]
  - CEREBRAL HAEMORRHAGE [None]
  - CONFUSIONAL STATE [None]
  - DEEP VEIN THROMBOSIS [None]
  - DISEASE PROGRESSION [None]
  - DISSEMINATED INTRAVASCULAR COAGULATION [None]
  - HEADACHE [None]
  - HEPATIC INFARCTION [None]
  - HEPATIC NECROSIS [None]
  - HYPOTENSION [None]
  - MENTAL STATUS CHANGES [None]
  - PANCREATIC CARCINOMA [None]
  - SEPSIS [None]
  - SPLENIC VEIN THROMBOSIS [None]
  - SUBDURAL HAEMATOMA [None]
